FAERS Safety Report 7767756-1 (Version None)
Quarter: 2011Q3

REPORT INFORMATION
  Report Type: 
  Country: None (occurrence: None)
  Receive Date: 20110922
  Receipt Date: 20101221
  Transmission Date: 20111222
  Serious: No
  Sender: FDA-Public Use
  Company Number: US-ASTRAZENECA-2010SE60195

PATIENT
  Age: 67 Year
  Sex: Male
  Weight: 86.2 kg

DRUGS (1)
  1. SEROQUEL XR [Suspect]
     Indication: BIPOLAR DISORDER
     Route: 048
     Dates: start: 20101201

REACTIONS (4)
  - SOMNAMBULISM [None]
  - COLITIS ULCERATIVE [None]
  - HEPATIC PAIN [None]
  - DIARRHOEA [None]
